FAERS Safety Report 7092769-5 (Version None)
Quarter: 2010Q4

REPORT INFORMATION
  Report Type: 
  Country: None (occurrence: None)
  Receive Date: 20101109
  Receipt Date: 20101109
  Transmission Date: 20110411
  Serious: No
  Sender: FDA-Public Use
  Company Number: None

PATIENT
  Sex: Male
  Weight: 67.1324 kg

DRUGS (1)
  1. CALCIUM 600 MG. OVAL/LITE [Suspect]
     Dosage: ONE 2X A DAY MOUTH
     Route: 048

REACTIONS (4)
  - APHTHOUS STOMATITIS [None]
  - DRY MOUTH [None]
  - DYSPEPSIA [None]
  - POLLAKIURIA [None]
